FAERS Safety Report 6691982-6 (Version None)
Quarter: 2010Q2

REPORT INFORMATION
  Report Type: 
  Country: None (occurrence: None)
  Receive Date: 20100422
  Receipt Date: 20100419
  Transmission Date: 20101027
  Serious: Yes (Death, Other)
  Sender: FDA-Public Use
  Company Number: PHEH2010US01807

PATIENT
  Sex: Female

DRUGS (1)
  1. RECLAST [Suspect]
     Dosage: UNK, UNK

REACTIONS (4)
  - CHOLECYSTECTOMY [None]
  - DEATH [None]
  - PNEUMONIA [None]
  - SMALL INTESTINAL OBSTRUCTION [None]
